FAERS Safety Report 13132360 (Version 2)
Quarter: 2017Q1

REPORT INFORMATION
  Report Type: Report from Study
  Country: BR (occurrence: BR)
  Receive Date: 20170120
  Receipt Date: 20170323
  Transmission Date: 20170428
  Serious: Yes (Hospitalization)
  Sender: FDA-Public Use
  Company Number: BR-ROCHE-1882103

PATIENT
  Sex: Female
  Weight: 49 kg

DRUGS (10)
  1. SPIRIVA RESPIMAT [Concomitant]
     Active Substance: TIOTROPIUM BROMIDE
  2. SERETIDE [Concomitant]
     Active Substance: FLUTICASONE PROPIONATE\SALMETEROL XINAFOATE
  3. PULMOZYME [Suspect]
     Active Substance: DORNASE ALFA
     Indication: CYSTIC FIBROSIS
     Route: 065
  4. BECLOSAL [Concomitant]
     Route: 065
  5. NACL .9% [Concomitant]
     Route: 065
  6. CREON [Concomitant]
     Active Substance: PANCRELIPASE AMYLASE\PANCRELIPASE LIPASE\PANCRELIPASE PROTEASE
  7. AQUADEKS [Concomitant]
     Active Substance: MINERALS\VITAMINS
  8. COLIMYCIN [Concomitant]
     Active Substance: COLISTIMETHATE SODIUM
  9. AZITHROMYCIN ANHYDROUS. [Concomitant]
     Active Substance: AZITHROMYCIN ANHYDROUS
  10. AEROLIN [Concomitant]
     Active Substance: ALBUTEROL

REACTIONS (1)
  - Lung infection [Not Recovered/Not Resolved]
